FAERS Safety Report 6063721-3 (Version None)
Quarter: 2009Q1

REPORT INFORMATION
  Report Type: 
  Country: None (occurrence: None)
  Receive Date: 20090130
  Receipt Date: 20090122
  Transmission Date: 20090719
  Serious: Yes (Other)
  Sender: FDA-Public Use
  Company Number: CHPA2009US00976

PATIENT
  Age: 75 Year
  Sex: Female
  Weight: 54 kg

DRUGS (11)
  1. VOLTAREN [Suspect]
     Indication: PHLEBITIS
     Dosage: 2 G, 2-3 TIMES QD, TOPICAL
     Route: 061
     Dates: start: 20090119, end: 20090122
  2. NITRO PATCH (GLYCERYL TRINITRATE) [Concomitant]
  3. CARTIA XT [Concomitant]
  4. PLAVIX [Concomitant]
  5. PROTONIX [Concomitant]
  6. LIPITOR /NET/ (ATORVASTATIN CALCIUM) [Concomitant]
  7. ASPIRIN [Concomitant]
  8. SPIRIVA [Concomitant]
  9. ADVAIR DISKUS 100/50 [Concomitant]
  10. ALBUTEROL [Concomitant]
  11. FOSAMAX [Concomitant]

REACTIONS (4)
  - BLOOD URINE PRESENT [None]
  - DRUG ADMINISTERED AT INAPPROPRIATE SITE [None]
  - MICTURITION URGENCY [None]
  - URINE OUTPUT DECREASED [None]
